FAERS Safety Report 6240149-4 (Version None)
Quarter: 2009Q2

REPORT INFORMATION
  Report Type: 
  Country: None (occurrence: None)
  Receive Date: 20090623
  Receipt Date: 20090217
  Transmission Date: 20091009
  Serious: No
  Sender: FDA-Public Use
  Company Number: A0765472A

PATIENT
  Age: 73 Year
  Sex: Female

DRUGS (12)
  1. HYCAMTIN [Suspect]
     Dosage: 2.2MG PER DAY
     Route: 042
     Dates: start: 20090104, end: 20090108
  2. LORTAB [Concomitant]
  3. ALBUTEROL [Concomitant]
  4. THYROID TAB [Concomitant]
  5. AVALIDE [Concomitant]
  6. CALCIUM [Concomitant]
  7. COLACE [Concomitant]
  8. FLUOXETINE HCL [Concomitant]
  9. M.V.I. [Concomitant]
  10. SENNA [Concomitant]
  11. VALIUM [Concomitant]
  12. VITAMIN E [Concomitant]

REACTIONS (1)
  - TINNITUS [None]
